FAERS Safety Report 24109726 (Version 4)
Quarter: 2025Q3

REPORT INFORMATION
  Report Type: Spontaneous
  Country: CA (occurrence: CA)
  Receive Date: 20240718
  Receipt Date: 20250708
  Transmission Date: 20251020
  Serious: Yes (Other)
  Sender: PFIZER
  Company Number: CA-PFIZER INC-202300285568

PATIENT
  Age: 59 Year
  Sex: Female
  Weight: 67.1 kg

DRUGS (6)
  1. RUXIENCE [Suspect]
     Active Substance: RITUXIMAB-PVVR
     Indication: Granulomatosis with polyangiitis
     Route: 042
     Dates: start: 20230823, end: 20230831
  2. RUXIENCE [Suspect]
     Active Substance: RITUXIMAB-PVVR
     Route: 042
     Dates: start: 20230831, end: 20230831
  3. RUXIENCE [Suspect]
     Active Substance: RITUXIMAB-PVVR
     Route: 042
     Dates: start: 20240229, end: 20240229
  4. RUXIENCE [Suspect]
     Active Substance: RITUXIMAB-PVVR
     Route: 042
     Dates: start: 20240821
  5. RUXIENCE [Suspect]
     Active Substance: RITUXIMAB-PVVR
     Route: 042
     Dates: start: 20250306
  6. CYCLOPHOSPHAMIDE/PREDNISONE [Concomitant]
     Dates: end: 202401

REACTIONS (12)
  - Retinal detachment [Recovered/Resolved]
  - Visual impairment [Recovered/Resolved]
  - Blood creatinine increased [Recovering/Resolving]
  - Urine abnormality [Unknown]
  - Weight decreased [Recovered/Resolved]
  - Intestinal polyp [Unknown]
  - Glycosuria [Unknown]
  - Nasal congestion [Unknown]
  - Rhinorrhoea [Unknown]
  - Parosmia [Unknown]
  - Ear disorder [Unknown]
  - Off label use [Unknown]

NARRATIVE: CASE EVENT DATE: 20230823
